FAERS Safety Report 11477626 (Version 3)
Quarter: 2020Q3

REPORT INFORMATION
  Report Type: Spontaneous
  Country: US (occurrence: US)
  Receive Date: 20150909
  Receipt Date: 20200820
  Transmission Date: 20201102
  Serious: No
  Sender: FDA-Public Use
  Company Number: US-JAZZ-2014-US-009876

PATIENT
  Sex: Male

DRUGS (31)
  1. CHIA OIL [Concomitant]
  2. AZELASTINE. [Concomitant]
     Active Substance: AZELASTINE HYDROCHLORIDE
  3. ERYTHROMYCIN. [Concomitant]
     Active Substance: ERYTHROMYCIN
  4. LEXAPRO [Concomitant]
     Active Substance: ESCITALOPRAM OXALATE
  5. NUVIGIL [Concomitant]
     Active Substance: ARMODAFINIL
  6. PRAVACHOL [Concomitant]
     Active Substance: PRAVASTATIN SODIUM
  7. LOPERAMIDE [Concomitant]
     Active Substance: LOPERAMIDE
  8. XYREM [Suspect]
     Active Substance: SODIUM OXYBATE
     Indication: NARCOLEPSY
     Dosage: 2 G, BID
     Route: 048
     Dates: start: 200805, end: 200806
  9. SILDENAFIL. [Concomitant]
     Active Substance: SILDENAFIL
  10. DOXYCYCLINE HYCLATE. [Concomitant]
     Active Substance: DOXYCYCLINE HYCLATE
  11. ROZEREM [Concomitant]
     Active Substance: RAMELTEON
  12. ASPIRIN EC [Concomitant]
     Active Substance: ASPIRIN
  13. CODEINE GUAIFENESIN [Concomitant]
     Active Substance: CODEINE PHOSPHATE\GUAIFENESIN
  14. PROPRANOLOL [Concomitant]
     Active Substance: PROPRANOLOL HYDROCHLORIDE
  15. FLAXSEED OIL [LINUM USITATISSIMUM SEED OIL] [Concomitant]
     Active Substance: HERBALS\LINSEED OIL
  16. BENZONATATE. [Concomitant]
     Active Substance: BENZONATATE
  17. TRAMADOL HCL [Concomitant]
     Active Substance: TRAMADOL HYDROCHLORIDE
  18. XYREM [Suspect]
     Active Substance: SODIUM OXYBATE
     Dosage: DOSE ADJUSTMENTS
     Route: 048
  19. SERTRALINE HYDROCHLORIDE. [Concomitant]
     Active Substance: SERTRALINE HYDROCHLORIDE
  20. PROAIR HFA [Concomitant]
     Active Substance: ALBUTEROL SULFATE
  21. ECONAZOLE NITRATE. [Concomitant]
     Active Substance: ECONAZOLE NITRATE
  22. AMBIEN CR [Concomitant]
     Active Substance: ZOLPIDEM TARTRATE
  23. XYREM [Suspect]
     Active Substance: SODIUM OXYBATE
     Dosage: 4.5 G, BID
     Route: 048
     Dates: start: 201407
  24. PRIMIDONE. [Concomitant]
     Active Substance: PRIMIDONE
  25. LISINOPRIL HCT [HYDROCHLOROTHIAZIDE;LISINOPRIL] [Concomitant]
     Active Substance: HYDROCHLOROTHIAZIDE\LISINOPRIL
  26. CLONAZEPAM. [Concomitant]
     Active Substance: CLONAZEPAM
  27. FLUTICASONE PROPIONATE. [Concomitant]
     Active Substance: FLUTICASONE PROPIONATE
  28. CLARITIN [Concomitant]
     Active Substance: LORATADINE
  29. FLOXIN [CIPROFLOXACIN] [Concomitant]
     Active Substance: CIPROFLOXACIN
  30. CYCLOBENZAPRINE. [Concomitant]
     Active Substance: CYCLOBENZAPRINE
  31. BENADRYL [Concomitant]
     Active Substance: DIPHENHYDRAMINE HYDROCHLORIDE

REACTIONS (4)
  - Apathy [Not Recovered/Not Resolved]
  - Confusional state [Unknown]
  - Amnesia [Not Recovered/Not Resolved]
  - Depression [Unknown]
